FAERS Safety Report 6715473-9 (Version None)
Quarter: 2010Q2

REPORT INFORMATION
  Report Type: 
  Country: None (occurrence: None)
  Receive Date: 20100506
  Receipt Date: 20100506
  Transmission Date: 20101027
  Serious: Yes (Hospitalization)
  Sender: FDA-Public Use
  Company Number: None

PATIENT
  Age: 79 Year
  Sex: Male
  Weight: 99.4 kg

DRUGS (8)
  1. NAPROXEN [Suspect]
     Indication: PAIN
     Dosage: PO OUT PT USE
     Route: 048
  2. CARVEDILOL [Concomitant]
  3. DILTIAZEM HCL [Concomitant]
  4. LISINOPRIL [Concomitant]
  5. FUROSEMIDE [Concomitant]
  6. DOCUSATE [Concomitant]
  7. ZOLPIDEM [Concomitant]
  8. HYDROMORPHONE HCL [Concomitant]

REACTIONS (5)
  - ASTHENIA [None]
  - DIZZINESS [None]
  - GASTRIC ULCER [None]
  - HAEMOGLOBIN DECREASED [None]
  - MELAENA [None]
